FAERS Safety Report 9198621 (Version 1)
Quarter: 2013Q1

REPORT INFORMATION
  Report Type: Spontaneous
  Country: US (occurrence: US)
  Receive Date: 20130329
  Receipt Date: 20130329
  Transmission Date: 20140127
  Serious: Yes (Hospitalization)
  Sender: FDA-Public Use
  Company Number: US-JNJFOC-20130312118

PATIENT
  Age: 80 Year
  Sex: Male
  Weight: 83.4 kg

DRUGS (17)
  1. XARELTO [Suspect]
     Indication: CEREBROVASCULAR ACCIDENT PROPHYLAXIS
     Dosage: 15 (UNITS UNSPECIFIED) ONCE DAILY IN THE EVENING
     Route: 048
  2. XARELTO [Suspect]
     Indication: CEREBROVASCULAR ACCIDENT PROPHYLAXIS
     Route: 048
  3. XARELTO [Suspect]
     Indication: ATRIAL FIBRILLATION
     Dosage: 15 (UNITS UNSPECIFIED) ONCE DAILY IN THE EVENING
     Route: 048
  4. XARELTO [Suspect]
     Indication: ATRIAL FIBRILLATION
     Route: 048
  5. NORVASC [Concomitant]
     Route: 065
  6. LIPITOR [Concomitant]
     Route: 065
  7. DILTIAZEM [Concomitant]
     Route: 065
  8. ADVAIR  DISKUS [Concomitant]
     Route: 065
  9. SINGULAIR [Concomitant]
     Route: 065
  10. SPIRONOLACTONE [Concomitant]
     Route: 065
  11. ALBUTEROL [Concomitant]
     Route: 065
  12. IPRATROPIUM [Concomitant]
     Route: 065
  13. PULMICORT [Concomitant]
     Route: 065
  14. FLONASE [Concomitant]
     Route: 065
  15. LOVAZA [Concomitant]
     Route: 065
  16. XOPENEX [Concomitant]
     Route: 065
  17. VITAMIN C [Concomitant]
     Route: 065

REACTIONS (3)
  - Haematuria [Recovered/Resolved]
  - Chronic obstructive pulmonary disease [Recovered/Resolved]
  - International normalised ratio increased [Unknown]
